FAERS Safety Report 7151029-4 (Version None)
Quarter: 2010Q4

REPORT INFORMATION
  Report Type: 
  Country: None (occurrence: None)
  Receive Date: 20101210
  Receipt Date: 20101206
  Transmission Date: 20110411
  Serious: Yes (Hospitalization, Disabling)
  Sender: FDA-Public Use
  Company Number: B0686824A

PATIENT
  Age: 25 Year
  Sex: Female

DRUGS (4)
  1. ARIXTRA [Suspect]
     Dosage: 7.5MG PER DAY
     Route: 058
     Dates: start: 20100901
  2. CISPLATIN [Suspect]
     Indication: OVARIAN CANCER
     Route: 065
     Dates: start: 20100501, end: 20100701
  3. DOLIPRANE [Concomitant]
     Route: 065
  4. TOPALGIC (FRANCE) [Concomitant]
     Route: 065
     Dates: start: 20100901

REACTIONS (4)
  - HEADACHE [None]
  - NUCLEAR MAGNETIC RESONANCE IMAGING ABNORMAL [None]
  - VASCULITIS CEREBRAL [None]
  - VISUAL IMPAIRMENT [None]
